FAERS Safety Report 8162919-8 (Version None)
Quarter: 2012Q1

REPORT INFORMATION
  Report Type: 
  Country: None (occurrence: None)
  Receive Date: 20120224
  Receipt Date: 20120222
  Transmission Date: 20120608
  Serious: Yes (Other)
  Sender: FDA-Public Use
  Company Number: US-AMGEN-USASP2011049267

PATIENT
  Age: 56 Year
  Sex: Female

DRUGS (13)
  1. NEXIUM [Concomitant]
  2. ENBREL [Suspect]
     Indication: OSTEOARTHRITIS
  3. MOBIC [Concomitant]
  4. MIRAPEX [Concomitant]
  5. MOTRIN [Concomitant]
  6. IRON [Concomitant]
  7. FENTANYL [Concomitant]
  8. ENBREL [Suspect]
     Indication: PSORIASIS
     Dosage: 50 MG, QWK
     Route: 058
     Dates: start: 20110901, end: 20111213
  9. ENBREL [Suspect]
  10. VITAMIN D [Concomitant]
  11. CALCIUM [Concomitant]
  12. CYMBALTA [Concomitant]
  13. TIZANIDINE HCL [Concomitant]

REACTIONS (13)
  - FEELING ABNORMAL [None]
  - MALAISE [None]
  - SINUS CONGESTION [None]
  - GAIT DISTURBANCE [None]
  - PAIN [None]
  - HEADACHE [None]
  - INJECTION SITE DISCOMFORT [None]
  - DIZZINESS [None]
  - APHASIA [None]
  - INJECTION SITE PAIN [None]
  - INJECTION SITE HAEMATOMA [None]
  - DYSPHEMIA [None]
  - DYSARTHRIA [None]
